FAERS Safety Report 5472369-0 (Version None)
Quarter: 2007Q3

REPORT INFORMATION
  Report Type: 
  Country: None (occurrence: None)
  Receive Date: 20070930
  Receipt Date: 20070918
  Transmission Date: 20080115
  Serious: Yes (Hospitalization)
  Sender: FDA-Public Use
  Company Number: US-SHR-US-2007-033036

PATIENT
  Age: 51 Year
  Sex: Female

DRUGS (1)
  1. BETASERON [Suspect]
     Indication: RELAPSING-REMITTING MULTIPLE SCLEROSIS
     Dosage: 2 MIU, EVERY 2D
     Route: 058
     Dates: start: 20070828, end: 20070907

REACTIONS (4)
  - ABASIA [None]
  - ASTHENIA [None]
  - LOSS OF CONTROL OF LEGS [None]
  - MULTIPLE SCLEROSIS [None]
